FAERS Safety Report 4570795-5 (Version None)
Quarter: 2005Q1

REPORT INFORMATION
  Report Type: 
  Country: None (occurrence: None)
  Receive Date: 20050202
  Receipt Date: 20050114
  Transmission Date: 20050727
  Serious: Yes (Death, Hospitalization)
  Sender: FDA-Public Use
  Company Number: AU_050108320

PATIENT
  Age: 34 Year
  Sex: Female

DRUGS (10)
  1. XIGRIS [Suspect]
     Indication: SEPSIS
     Dosage: 24 MG OTHER
     Dates: start: 20050110, end: 20050110
  2. ACTRAPID (INSULIN) [Concomitant]
  3. ZANTAC [Concomitant]
  4. HYDROCORTISONE [Concomitant]
  5. LEVOPHED [Concomitant]
  6. ERYTHROMYCIN [Concomitant]
  7. MORPHINE [Concomitant]
  8. VASOPRESSIN INJECTION [Concomitant]
  9. SODIUM BICARBONATE [Concomitant]
  10. GELOFUSINE (SUCCINYLATED GELATIN) [Concomitant]

REACTIONS (1)
  - MULTI-ORGAN FAILURE [None]
